FAERS Safety Report 10582737 (Version 1)
Quarter: 2014Q4

REPORT INFORMATION
  Report Type: Spontaneous
  Country: IT (occurrence: IT)
  Receive Date: 20141113
  Receipt Date: 20141113
  Transmission Date: 20150529
  Serious: Yes (Hospitalization)
  Sender: FDA-Public Use
  Company Number: PHHY2014IT146340

PATIENT
  Age: 81 Year
  Sex: Female

DRUGS (10)
  1. DROPAXIN 10 MG/ML [Suspect]
     Active Substance: PAROXETINE HYDROCHLORIDE
     Indication: COGNITIVE DISORDER
     Dosage: 40 DRP, QD
     Route: 048
     Dates: start: 20130101, end: 20141008
  2. TICLOPIDINE [Suspect]
     Active Substance: TICLOPIDINE
     Dosage: 250 MG, UNK
  3. LANSOPRAZOLE. [Concomitant]
     Active Substance: LANSOPRAZOLE
     Dosage: 30 MG, UNK
  4. NOVONORM [Concomitant]
     Active Substance: REPAGLINIDE
  5. MEMANTINE HYDROCHLORIDE [Concomitant]
     Active Substance: MEMANTINE HYDROCHLORIDE
     Dosage: 20 MG, UNK
  6. CARDICOR [Suspect]
     Active Substance: BISOPROLOL
     Indication: ATRIAL FIBRILLATION
     Dosage: 1.25 MG, QD
     Route: 048
     Dates: start: 20130101, end: 20141008
  7. KARVEZIDE [Concomitant]
     Active Substance: HYDROCHLOROTHIAZIDE\IRBESARTAN
  8. INEGY [Concomitant]
     Active Substance: EZETIMIBE\SIMVASTATIN
  9. QUETIAPINE FUMARATE. [Concomitant]
     Active Substance: QUETIAPINE FUMARATE
     Dosage: 50 MG, UNK
  10. DONEPEZIL [Suspect]
     Active Substance: DONEPEZIL
     Indication: COGNITIVE DISORDER
     Dosage: 1 DF, QD
     Route: 048
     Dates: start: 20130101, end: 20141008

REACTIONS (2)
  - Bradycardia [Recovered/Resolved]
  - Syncope [Recovered/Resolved]

NARRATIVE: CASE EVENT DATE: 20141008
